FAERS Safety Report 11166714 (Version 3)
Quarter: 2015Q4

REPORT INFORMATION
  Report Type: Spontaneous
  Country: US (occurrence: US)
  Receive Date: 20150605
  Receipt Date: 20151002
  Transmission Date: 20160304
  Serious: No
  Sender: FDA-Public Use
  Company Number: US-JNJFOC-20150422201

PATIENT
  Age: 36 Year
  Sex: Female

DRUGS (14)
  1. TOPAMAX [Suspect]
     Active Substance: TOPIRAMATE
     Indication: AFFECTIVE DISORDER
     Dosage: MORNING-EVENING
     Route: 048
     Dates: start: 201504
  2. LITHIUM CARBONATE. [Suspect]
     Active Substance: LITHIUM CARBONATE
     Indication: SCHIZOAFFECTIVE DISORDER BIPOLAR TYPE
     Route: 065
  3. TOPAMAX [Suspect]
     Active Substance: TOPIRAMATE
     Indication: AFFECTIVE DISORDER
     Route: 048
  4. TRILEPTAL [Suspect]
     Active Substance: OXCARBAZEPINE
     Indication: PRODUCT USED FOR UNKNOWN INDICATION
     Route: 065
  5. TOPAMAX [Suspect]
     Active Substance: TOPIRAMATE
     Indication: AFFECTIVE DISORDER
     Dosage: MORNING-EVENING
     Route: 048
  6. TOPAMAX [Suspect]
     Active Substance: TOPIRAMATE
     Indication: INSOMNIA
     Route: 048
  7. COLACE [Concomitant]
     Active Substance: DOCUSATE SODIUM
     Indication: PRODUCT USED FOR UNKNOWN INDICATION
     Route: 065
     Dates: start: 201503
  8. TOPAMAX [Suspect]
     Active Substance: TOPIRAMATE
     Indication: WEIGHT ABNORMAL
     Route: 048
  9. TOPAMAX [Suspect]
     Active Substance: TOPIRAMATE
     Indication: INSOMNIA
     Dosage: MORNING-EVENING
     Route: 048
     Dates: start: 201504
  10. TOPAMAX [Suspect]
     Active Substance: TOPIRAMATE
     Indication: WEIGHT ABNORMAL
     Dosage: MORNING-EVENING
     Route: 048
  11. TOPAMAX [Suspect]
     Active Substance: TOPIRAMATE
     Indication: INSOMNIA
     Dosage: MORNING-EVENING
     Route: 048
  12. COGENTIN [Concomitant]
     Active Substance: BENZTROPINE MESYLATE
     Indication: PRODUCT USED FOR UNKNOWN INDICATION
     Route: 065
     Dates: start: 201411
  13. VITAMIN C [Concomitant]
     Active Substance: ASCORBIC ACID
     Indication: PRODUCT USED FOR UNKNOWN INDICATION
     Route: 065
     Dates: start: 201504
  14. TOPAMAX [Suspect]
     Active Substance: TOPIRAMATE
     Indication: WEIGHT ABNORMAL
     Dosage: MORNING-EVENING
     Route: 048
     Dates: start: 201504

REACTIONS (6)
  - Arrhythmia [Not Recovered/Not Resolved]
  - Product use issue [Unknown]
  - Memory impairment [Unknown]
  - Tremor [Not Recovered/Not Resolved]
  - Disturbance in attention [Unknown]
  - Bladder disorder [Not Recovered/Not Resolved]

NARRATIVE: CASE EVENT DATE: 201411
